FAERS Safety Report 6335244-5 (Version None)
Quarter: 2009Q3

REPORT INFORMATION
  Report Type: 
  Country: None (occurrence: None)
  Receive Date: 20090831
  Receipt Date: 20071209
  Transmission Date: 20100115
  Serious: Yes (Other)
  Sender: FDA-Public Use
  Company Number: TW-PFIZER INC-2007096366

PATIENT

DRUGS (1)
  1. LIPITOR [Suspect]
     Route: 048
     Dates: end: 20071108

REACTIONS (9)
  - BLOOD BILIRUBIN INCREASED [None]
  - BLOOD CHOLESTEROL ABNORMAL [None]
  - CHEST PAIN [None]
  - CONSTIPATION [None]
  - HYPOAESTHESIA [None]
  - INSOMNIA [None]
  - LOW DENSITY LIPOPROTEIN INCREASED [None]
  - MYALGIA [None]
  - YELLOW SKIN [None]
